FAERS Safety Report 19012542 (Version 1)
Quarter: 2021Q1

REPORT INFORMATION
  Report Type: Spontaneous
  Country: GB (occurrence: GB)
  Receive Date: 20210316
  Receipt Date: 20210316
  Transmission Date: 20210420
  Serious: Yes (Disabling)
  Sender: FDA-Public Use
  Company Number: None

PATIENT
  Age: 25 Year
  Sex: Male
  Weight: 190 kg

DRUGS (1)
  1. PROPECIA [Suspect]
     Active Substance: FINASTERIDE
     Indication: ALOPECIA
     Route: 048
     Dates: start: 20190819, end: 20200201

REACTIONS (3)
  - Vitreous floaters [None]
  - Blepharitis [None]
  - Seborrhoeic dermatitis [None]

NARRATIVE: CASE EVENT DATE: 20200119
